FAERS Safety Report 4451182-7 (Version None)
Quarter: 2004Q3

REPORT INFORMATION
  Report Type: 
  Country: None (occurrence: None)
  Receive Date: 20040915
  Receipt Date: 20040915
  Transmission Date: 20050211
  Serious: Yes (Other)
  Sender: FDA-Public Use
  Company Number: None

PATIENT
  Sex: Male

DRUGS (14)
  1. ARIPIPRAZOLE 15MG [Suspect]
     Indication: BIPOLAR I DISORDER
     Dosage: 15 MG QD PO
     Route: 048
     Dates: start: 20040824
  2. LAMOTRIGINE [Suspect]
     Indication: BIPOLAR I DISORDER
     Dosage: 25 MG BID PO
     Route: 048
     Dates: start: 20040824
  3. CLONAZEPAM [Concomitant]
  4. NITROGLYCERIN [Concomitant]
  5. TRAMADOL HCL [Concomitant]
  6. ASPIRIN [Concomitant]
  7. CLOPIDOGREL BISULFATE [Concomitant]
  8. ISOSORBIDE MONONITRATE [Concomitant]
  9. LISINOPRIL [Concomitant]
  10. METFORMIN HCL [Concomitant]
  11. METOPROLOL TARTRATE [Concomitant]
  12. GABAPENTIN [Concomitant]
  13. ALPROSTADIL [Concomitant]
  14. SIMVASTATIN [Concomitant]

REACTIONS (2)
  - DIFFICULTY IN WALKING [None]
  - MOBILITY DECREASED [None]
